FAERS Safety Report 22239264 (Version 1)
Quarter: 2023Q2

REPORT INFORMATION
  Report Type: Report from Study
  Country: JP (occurrence: JP)
  Receive Date: 20230421
  Receipt Date: 20230421
  Transmission Date: 20230722
  Serious: Yes (Death, Other)
  Sender: FDA-Public Use
  Company Number: JP-VIIVHC-JP2016JPN073685AA

PATIENT

DRUGS (11)
  1. DOLUTEGRAVIR [Suspect]
     Active Substance: DOLUTEGRAVIR
     Indication: HIV infection
     Dosage: 50 MG, 1D
     Route: 048
     Dates: start: 20150128, end: 20220906
  2. DESCOVY [Suspect]
     Active Substance: EMTRICITABINE\TENOFOVIR ALAFENAMIDE FUMARATE
     Indication: HIV infection
     Dosage: 1 DF, 1D
     Dates: start: 20180507, end: 20220906
  3. TRUVADA [Concomitant]
     Active Substance: EMTRICITABINE\TENOFOVIR DISOPROXIL FUMARATE
     Indication: HIV infection
     Dosage: 1 DF, 1D
     Dates: start: 20150128, end: 20180506
  4. VENETLIN INHALATION [Concomitant]
     Indication: Antifungal prophylaxis
     Dosage: 0.3 ML, QD
     Dates: start: 20140818, end: 20150128
  5. PENTAMIDINE [Concomitant]
     Active Substance: PENTAMIDINE
     Indication: Antifungal prophylaxis
     Dosage: 0.33 V, QD
     Dates: start: 20140818, end: 20150128
  6. CODEINE PHOSPHATE [Concomitant]
     Active Substance: CODEINE PHOSPHATE
     Dosage: UNK
     Dates: start: 20181105, end: 201811
  7. CODEINE PHOSPHATE [Concomitant]
     Active Substance: CODEINE PHOSPHATE
     Dosage: UNK
     Dates: start: 20190204, end: 201902
  8. AIMMUGEN [Concomitant]
     Indication: Prophylaxis
     Dosage: UNK
     Dates: start: 20180507, end: 20180507
  9. AIMMUGEN [Concomitant]
     Dosage: UNK
     Dates: start: 20180611, end: 20180611
  10. LIVOSTIN OPHTHALMIC SOLUTION (LEVOCABASTINE HYDROCHLORIDE) [Concomitant]
     Dosage: UNK
     Dates: start: 20190204
  11. SERETIDE [Concomitant]
     Active Substance: FLUTICASONE PROPIONATE\SALMETEROL XINAFOATE
     Dosage: 250 ?G
     Dates: start: 20190513, end: 20220906

REACTIONS (3)
  - Death [Fatal]
  - Rash pruritic [Recovering/Resolving]
  - Vocal cord inflammation [Recovered/Resolved]

NARRATIVE: CASE EVENT DATE: 20150810
